FAERS Safety Report 7018785-7 (Version None)
Quarter: 2010Q3

REPORT INFORMATION
  Report Type: 
  Country: None (occurrence: None)
  Receive Date: 20100928
  Receipt Date: 20100923
  Transmission Date: 20110219
  Serious: Yes (Death, Other)
  Sender: FDA-Public Use
  Company Number: PHHY2010US63031

PATIENT
  Age: 41 Year
  Sex: Male

DRUGS (1)
  1. MYCOPHENOLATE MOFETIL [Suspect]
     Indication: STEM CELL TRANSPLANT

REACTIONS (6)
  - CELLULITIS [None]
  - CHRONIC GRAFT VERSUS HOST DISEASE [None]
  - DIARRHOEA [None]
  - HEPATIC CIRRHOSIS [None]
  - SALMONELLA TEST POSITIVE [None]
  - SEPTIC SHOCK [None]
